FAERS Safety Report 4544714-1 (Version None)
Quarter: 2004Q4

REPORT INFORMATION
  Report Type: 
  Country: None (occurrence: None)
  Receive Date: 20041230
  Receipt Date: 20041214
  Transmission Date: 20050328
  Serious: Yes (Other)
  Sender: FDA-Public Use
  Company Number: 2004108544

PATIENT
  Age: 57 Year
  Sex: Male

DRUGS (4)
  1. ZOXAN LP (DOXAZOSIN) [Suspect]
     Indication: BENIGN PROSTATIC HYPERPLASIA
     Dosage: 4 MG (4 MG, 1 IN 1 D); UNKNOWN
     Route: 065
     Dates: start: 19970101
  2. HYZAAR [Concomitant]
  3. ALLOPURINOL [Concomitant]
  4. DESLORATADINE [Concomitant]

REACTIONS (2)
  - ADENOCARCINOMA [None]
  - GYNAECOMASTIA [None]
